FAERS Safety Report 10402453 (Version 1)
Quarter: 2014Q3

REPORT INFORMATION
  Report Type: Spontaneous
  Country: US (occurrence: US)
  Receive Date: 20140822
  Receipt Date: 20140822
  Transmission Date: 20150326
  Serious: No
  Sender: FDA-Public Use
  Company Number: US-ELI_LILLY_AND_COMPANY-US201408007952

PATIENT
  Sex: Female

DRUGS (6)
  1. HUMULIN 70/30 [Suspect]
     Active Substance: INSULIN HUMAN
     Indication: TYPE 2 DIABETES MELLITUS
     Dosage: UNK UNK, PRN
     Dates: start: 1989
  2. ROPINIROLE. [Concomitant]
     Active Substance: ROPINIROLE
  3. PRILOSEC [Concomitant]
     Active Substance: OMEPRAZOLE MAGNESIUM
  4. METOPROLOL [Concomitant]
     Active Substance: METOPROLOL
  5. LOSARTAN [Concomitant]
     Active Substance: LOSARTAN
  6. MAGNESIUM [Concomitant]
     Active Substance: MAGNESIUM

REACTIONS (7)
  - Drug ineffective [Recovered/Resolved]
  - Cardiac disorder [Unknown]
  - Sleep apnoea syndrome [Unknown]
  - Dyspepsia [Recovered/Resolved]
  - Restless legs syndrome [Unknown]
  - Malaise [Recovered/Resolved]
  - Blood glucose increased [Recovered/Resolved]
